FAERS Safety Report 5605533-8 (Version None)
Quarter: 2008Q1

REPORT INFORMATION
  Report Type: 
  Country: None (occurrence: None)
  Receive Date: 20080129
  Receipt Date: 20080118
  Transmission Date: 20080703
  Serious: Yes (Hospitalization)
  Sender: FDA-Public Use
  Company Number: SE-JNJFOC-20080106555

PATIENT
  Age: 66 Year
  Sex: Male

DRUGS (8)
  1. REMICADE [Suspect]
     Indication: SPONDYLITIS
     Route: 042
  2. TRAMADOL HCL [Concomitant]
  3. METHOTREXATE [Concomitant]
  4. ISRADIPINE [Concomitant]
  5. FOLACIN [Concomitant]
  6. PREDNISOLONE [Concomitant]
  7. ENALAPRIL MALEATE [Concomitant]
  8. CELEBRA [Concomitant]

REACTIONS (5)
  - BLOOD PRESSURE FLUCTUATION [None]
  - CHEST PAIN [None]
  - CORONARY ARTERY INSUFFICIENCY [None]
  - MYOCARDIAL ISCHAEMIA [None]
  - PALPITATIONS [None]
